FAERS Safety Report 9207995 (Version 2)
Quarter: 2013Q2

REPORT INFORMATION
  Report Type: Spontaneous
  Country: US (occurrence: US)
  Receive Date: 20130403
  Receipt Date: 20130522
  Transmission Date: 20140414
  Serious: Yes (Hospitalization)
  Sender: FDA-Public Use
  Company Number: US-B.I. PHARMACEUTICALS,INC./RIDGEFIELD-2013-BI-08674BP

PATIENT
  Sex: Female
  Weight: 145.15 kg

DRUGS (1)
  1. PRADAXA [Suspect]
     Dosage: 150 MG
     Dates: start: 20120415, end: 20130328

REACTIONS (1)
  - Post procedural haemorrhage [Not Recovered/Not Resolved]
